FAERS Safety Report 7682529-6 (Version None)
Quarter: 2011Q3

REPORT INFORMATION
  Report Type: 
  Country: None (occurrence: None)
  Receive Date: 20110815
  Receipt Date: 20110805
  Transmission Date: 20111222
  Serious: Yes (Disabling)
  Sender: FDA-Public Use
  Company Number: FR-SANOFI-AVENTIS-2011SA050175

PATIENT
  Age: 33 Year
  Sex: Male

DRUGS (2)
  1. LEVOFLOXACIN [Suspect]
     Indication: PNEUMONIA
     Route: 048
     Dates: start: 20110512, end: 20110523
  2. KETEK [Suspect]
     Route: 048
     Dates: start: 20110508, end: 20110511

REACTIONS (1)
  - MUSCULAR WEAKNESS [None]
